FAERS Safety Report 11496299 (Version 2)
Quarter: 2015Q3

REPORT INFORMATION
  Report Type: Spontaneous
  Country: FR (occurrence: FR)
  Receive Date: 20150911
  Receipt Date: 20150918
  Transmission Date: 20151125
  Serious: Yes (Death)
  Sender: FDA-Public Use
  Company Number: FR-JAZZ-2011-281

PATIENT
  Age: 65 Year
  Sex: Male
  Weight: 78 kg

DRUGS (3)
  1. PRIALT [Suspect]
     Active Substance: ZICONOTIDE ACETATE
     Indication: PAIN
     Dosage: 0.04 UG, ONCE/HOUR, INTRAVENTRICULARLY
     Dates: start: 20110411, end: 20110429
  2. MORPHINE SULFATE. [Suspect]
     Active Substance: MORPHINE SULFATE
     Indication: PAIN
     Dosage: UNK MG, ONCE/HOUR
     Dates: start: 20110401
  3. NAROPEINE [Suspect]
     Active Substance: ROPIVACAINE HYDROCHLORIDE
     Indication: PAIN
     Dosage: UNK MG, ONCE/HOUR

REACTIONS (7)
  - Agitation [Recovered/Resolved]
  - Hostility [Recovered/Resolved]
  - Neoplasm progression [Fatal]
  - Aphasia [Recovered/Resolved]
  - Arterial haemorrhage [Fatal]
  - Confusional state [Recovered/Resolved]
  - Incorrect route of drug administration [Recovered/Resolved]

NARRATIVE: CASE EVENT DATE: 201104
